FAERS Safety Report 11782309 (Version 2)
Quarter: 2015Q4

REPORT INFORMATION
  Report Type: Spontaneous
  Country: CA (occurrence: CA)
  Receive Date: 20151127
  Receipt Date: 20151222
  Transmission Date: 20160305
  Serious: Yes (Other)
  Sender: FDA-Public Use
  Company Number: CA-BEH-2015056103

PATIENT
  Sex: Female

DRUGS (7)
  1. ZANTAC [Concomitant]
     Active Substance: RANITIDINE HYDROCHLORIDE
     Indication: PREMEDICATION
     Dates: start: 20151116
  2. HIZENTRA [Suspect]
     Active Substance: HUMAN IMMUNOGLOBULIN G
     Route: 058
     Dates: start: 20151116
  3. SEPTRA [Concomitant]
     Active Substance: SULFAMETHOXAZOLE\TRIMETHOPRIM
     Dates: start: 20151117
  4. HIZENTRA [Suspect]
     Active Substance: HUMAN IMMUNOGLOBULIN G
     Route: 058
     Dates: start: 201410, end: 201504
  5. HIZENTRA [Suspect]
     Active Substance: HUMAN IMMUNOGLOBULIN G
     Route: 058
     Dates: start: 201511
  6. BENADRYL [Concomitant]
     Active Substance: DIPHENHYDRAMINE HYDROCHLORIDE
     Indication: PREMEDICATION
     Dates: start: 20151116
  7. HIZENTRA [Suspect]
     Active Substance: HUMAN IMMUNOGLOBULIN G
     Indication: IMMUNODEFICIENCY COMMON VARIABLE
     Route: 058
     Dates: start: 201507

REACTIONS (23)
  - Asthenia [Unknown]
  - Fatigue [Unknown]
  - Dizziness [Unknown]
  - Fatigue [Unknown]
  - Tremor [Unknown]
  - Migraine [Unknown]
  - Dyspnoea [Unknown]
  - Blood pressure decreased [Unknown]
  - Palpitations [Unknown]
  - Hypersensitivity [Unknown]
  - Hypersensitivity [Unknown]
  - Chest pain [Unknown]
  - Hot flush [Unknown]
  - Fatigue [Unknown]
  - Heart rate abnormal [Unknown]
  - Heart rate increased [Unknown]
  - Presyncope [Unknown]
  - Paraesthesia oral [Unknown]
  - Tremor [Recovering/Resolving]
  - Unevaluable event [Unknown]
  - Palpitations [Unknown]
  - Ear discomfort [Unknown]
  - Tremor [Unknown]

NARRATIVE: CASE EVENT DATE: 201511
